FAERS Safety Report 8592649-X (Version None)
Quarter: 2012Q3

REPORT INFORMATION
  Report Type: 
  Country: None (occurrence: None)
  Receive Date: 20120814
  Receipt Date: 20120802
  Transmission Date: 20120928
  Serious: Yes (Other)
  Sender: FDA-Public Use
  Company Number: US-ELI_LILLY_AND_COMPANY-US201208001277

PATIENT
  Sex: Female

DRUGS (2)
  1. LANTUS [Concomitant]
     Indication: DIABETES MELLITUS
     Dosage: 65 U, BID
  2. HUMALOG [Suspect]
     Indication: DIABETES MELLITUS
     Dosage: 12 U, TID

REACTIONS (4)
  - CYSTITIS [None]
  - EXPLORATORY OPERATION [None]
  - VISUAL ACUITY REDUCED [None]
  - URINARY TRACT INFECTION [None]
